FAERS Safety Report 14479452 (Version 2)
Quarter: 2018Q1

REPORT INFORMATION
  Report Type: Other
  Country: CH (occurrence: CH)
  Receive Date: 20180202
  Receipt Date: 20180213
  Transmission Date: 20180509
  Serious: Yes (Death)
  Sender: FDA-Public Use
  Company Number: CH-ALSI-201800071

PATIENT
  Age: 64 Year
  Sex: Male

DRUGS (1)
  1. SAUERSTOFF MEDIZINAL / OXYG?NE M?DICINAL OXYGEN 100% [Suspect]
     Active Substance: OXYGEN
     Indication: PRODUCT USED FOR UNKNOWN INDICATION
     Route: 055

REACTIONS (3)
  - Dyspnoea [Fatal]
  - Device issue [Fatal]
  - Underdose [Fatal]

NARRATIVE: CASE EVENT DATE: 20180128
